FAERS Safety Report 22003641 (Version 1)
Quarter: 2023Q1

REPORT INFORMATION
  Report Type: Spontaneous
  Country: IT (occurrence: IT)
  Receive Date: 20230217
  Receipt Date: 20230217
  Transmission Date: 20230418
  Serious: Yes (Other)
  Sender: FDA-Public Use
  Company Number: IT-MINISAL02-907604

PATIENT
  Age: 81 Year
  Sex: Female

DRUGS (2)
  1. GEMCITABINE [Suspect]
     Active Substance: GEMCITABINE
     Indication: Lung adenocarcinoma stage IV
     Dosage: 1100 MILLIGRAM
     Route: 040
     Dates: start: 20220316
  2. CARBOPLATIN [Suspect]
     Active Substance: CARBOPLATIN
     Indication: Lung adenocarcinoma stage IV
     Dosage: 300 MILLIGRAM
     Route: 040
     Dates: start: 20220316

REACTIONS (2)
  - Hypertransaminasaemia [Recovered/Resolved]
  - Anaemia [Recovering/Resolving]

NARRATIVE: CASE EVENT DATE: 20220513
